FAERS Safety Report 5025672-2 (Version None)
Quarter: 2006Q2

REPORT INFORMATION
  Report Type: 
  Country: None (occurrence: None)
  Receive Date: 20060608
  Receipt Date: 20060525
  Transmission Date: 20061013
  Serious: Yes (Other)
  Sender: FDA-Public Use
  Company Number: 2006BH010351

PATIENT

DRUGS (2)
  1. VINORELBINE [Suspect]
     Indication: METASTATIC MALIGNANT MELANOMA
     Dosage: 30 MG/M**2; IV
  2. VINORELBINE [Suspect]
     Indication: METASTATIC MALIGNANT MELANOMA
     Dosage: 30 MG/M**2; IV

REACTIONS (1)
  - NEUTROPENIA [None]
